FAERS Safety Report 21699513 (Version 2)
Quarter: 2023Q1

REPORT INFORMATION
  Report Type: Report from Study
  Country: US (occurrence: US)
  Receive Date: 20221208
  Receipt Date: 20230112
  Transmission Date: 20230418
  Serious: No
  Sender: FDA-Public Use
  Company Number: US-BRISTOL-MYERS SQUIBB COMPANY-2022-148197

PATIENT
  Age: 27 Year
  Sex: Male
  Weight: 117.93 kg

DRUGS (2)
  1. SOTYKTU [Suspect]
     Active Substance: DEUCRAVACITINIB
     Indication: Product used for unknown indication
     Dosage: FREQUENCY: DAILY
     Route: 048
     Dates: start: 20221128
  2. WELLBUTRIN [Concomitant]
     Active Substance: BUPROPION HYDROCHLORIDE
     Indication: Product used for unknown indication

REACTIONS (1)
  - Throat tightness [Unknown]

NARRATIVE: CASE EVENT DATE: 20221128
